FAERS Safety Report 14679163 (Version 5)
Quarter: 2020Q1

REPORT INFORMATION
  Report Type: Spontaneous
  Country: US (occurrence: US)
  Receive Date: 20180326
  Receipt Date: 20200221
  Transmission Date: 20200409
  Serious: No
  Sender: FDA-Public Use
  Company Number: US-PFIZER INC-2018120178

PATIENT
  Age: 71 Year
  Sex: Female
  Weight: 62.6 kg

DRUGS (16)
  1. SOMA [Concomitant]
     Active Substance: CARISOPRODOL
     Indication: MUSCLE SPASMS
     Dosage: 175 MG, 1X/DAY (HALF TABLET AT BED TIME)
     Route: 048
  2. NEXIUM [Concomitant]
     Active Substance: ESOMEPRAZOLE MAGNESIUM
     Indication: DYSPEPSIA
  3. TYLENOL WITH CODEINE [Concomitant]
     Active Substance: ACETAMINOPHEN\CODEINE PHOSPHATE
     Indication: PAIN
     Dosage: [CODEINE, 60MG]/[ACETAMINOPHEN, 300MG]300/60MG TABLETS.  HALF A TABLET BY MOUTH AT NIGHT IF NEEDED
     Route: 048
  4. REVATIO [Suspect]
     Active Substance: SILDENAFIL CITRATE
     Dosage: UNK, 2X/DAY (TAKING 1/2 DOSE/ BACKED DOWN TO 1/2 OR A LITTLE MORE)
  5. LISINOPRIL. [Concomitant]
     Active Substance: LISINOPRIL
     Indication: BLOOD PRESSURE ABNORMAL
  6. TYLENOL WITH CODEINE [Concomitant]
     Active Substance: ACETAMINOPHEN\CODEINE PHOSPHATE
     Dosage: UNK
  7. REVATIO [Suspect]
     Active Substance: SILDENAFIL CITRATE
     Indication: SCLERODERMA
     Dosage: 0.5 TEASPOON BY MOUTH/STARTED TAKING REVATIO AS HALF A TEASPOON AND TOOK HALF A TEASPOON FOR 3 DAYS
     Route: 048
     Dates: start: 201801
  8. REVATIO [Suspect]
     Active Substance: SILDENAFIL CITRATE
     Indication: POOR PERIPHERAL CIRCULATION
     Dosage: INCREASED THE DOSE FROM THERE/CURRENTLY TAKING 1ML/10MG ONCE IN THE MORNING AND ONCE AT NIGHT
  9. TRAMADOL/APAP [Concomitant]
     Active Substance: ACETAMINOPHEN\TRAMADOL
     Dosage: UNK
  10. REVATIO [Suspect]
     Active Substance: SILDENAFIL CITRATE
     Indication: SYSTEMIC SCLERODERMA
     Dosage: 5 MG, UNK(1 OR 2X A DAY)
     Dates: start: 20180201
  11. LISINOPRIL. [Concomitant]
     Active Substance: LISINOPRIL
     Indication: HYPERTENSION
     Dosage: 20 MG, 1X/DAY (20MG TABLET ONCE DAILY BY MOUTH)
     Route: 048
  12. NEXIUM [Concomitant]
     Active Substance: ESOMEPRAZOLE MAGNESIUM
     Indication: GASTROOESOPHAGEAL REFLUX DISEASE
     Dosage: 20 MG, 1X/DAY (20MG CAPSULE ONCE DAILY BY MOUTH)
     Route: 048
     Dates: start: 2014
  13. TRAMADOL/APAP [Concomitant]
     Active Substance: ACETAMINOPHEN\TRAMADOL
     Indication: PAIN
     Dosage: [TRAMADOL, 37.5MG]/[ACETAMINOPHEN, 325MG]37.5MG/325MG CRUSHED TABLETS BY MOUTH AS NEEDED.
     Route: 048
  14. CHLORPHENIRAMINE [CHLORPHENAMINE] [Concomitant]
     Active Substance: CHLORPHENIRAMINE
     Indication: SINUS NODE DYSFUNCTION
     Dosage: 4 MG, 3X/DAY
     Route: 048
  15. REVATIO [Suspect]
     Active Substance: SILDENAFIL CITRATE
     Dosage: 60 MG, DAILY (TAKE 2 ML, 20 MG BY MOUTH EVERY 8 HOURS)
     Route: 048
  16. ACETAMINOPHEN AND CODEINE [Concomitant]
     Active Substance: ACETAMINOPHEN\CODEINE PHOSPHATE
     Indication: PAIN
     Dosage: 1 DF, AS NEEDED (EVERY 4 TO 6 HOURS AS NEEDED)
     Route: 048

REACTIONS (12)
  - Nasopharyngitis [Recovered/Resolved]
  - Malaise [Not Recovered/Not Resolved]
  - Influenza like illness [Recovered/Resolved]
  - Product use in unapproved indication [Unknown]
  - Gastroenteritis viral [Unknown]
  - Dizziness [Recovered/Resolved]
  - Off label use [Unknown]
  - Hyperchlorhydria [Not Recovered/Not Resolved]
  - Dysphagia [Unknown]
  - Tremor [Recovered/Resolved]
  - Abdominal discomfort [Not Recovered/Not Resolved]
  - Intentional product misuse [Unknown]

NARRATIVE: CASE EVENT DATE: 201801
